FAERS Safety Report 22717207 (Version 6)
Quarter: 2025Q2

REPORT INFORMATION
  Report Type: Spontaneous
  Country: US (occurrence: US)
  Receive Date: 20230718
  Receipt Date: 20250618
  Transmission Date: 20250716
  Serious: Yes (Life-Threatening, Other)
  Sender: PFIZER
  Company Number: US-PFIZER INC-PV202300124084

PATIENT
  Age: 54 Year
  Sex: Female

DRUGS (32)
  1. IBRANCE [Suspect]
     Active Substance: PALBOCICLIB
     Indication: Breast cancer female
     Route: 048
     Dates: start: 20181015
  2. IBRANCE [Suspect]
     Active Substance: PALBOCICLIB
     Route: 048
  3. IBRANCE [Suspect]
     Active Substance: PALBOCICLIB
     Route: 048
     Dates: start: 20200312, end: 20231221
  4. IBRANCE [Suspect]
     Active Substance: PALBOCICLIB
     Dates: start: 20240627, end: 202411
  5. FASLODEX [Suspect]
     Active Substance: FULVESTRANT
  6. ATOVAQUONE [Concomitant]
     Active Substance: ATOVAQUONE
  7. ALPRAZOLAM [Concomitant]
     Active Substance: ALPRAZOLAM
  8. QUETIAPINE [Concomitant]
     Active Substance: QUETIAPINE
  9. QUETIAPINE [Concomitant]
     Active Substance: QUETIAPINE
  10. QUETIAPINE [Concomitant]
     Active Substance: QUETIAPINE
  11. MONTELUKAST [Concomitant]
     Active Substance: MONTELUKAST
  12. PAROXETINE [Concomitant]
     Active Substance: PAROXETINE
  13. CLOPIDOGREL [Concomitant]
     Active Substance: CLOPIDOGREL BISULFATE
  14. PANTOPRAZOLE [Concomitant]
     Active Substance: PANTOPRAZOLE
  15. OXYCODONE [Concomitant]
     Active Substance: OXYCODONE
  16. LEVOTHYROXINE [Concomitant]
     Active Substance: LEVOTHYROXINE
  17. LEVOTHYROXINE [Concomitant]
     Active Substance: LEVOTHYROXINE
  18. SIMVASTATIN [Concomitant]
     Active Substance: SIMVASTATIN
  19. MECLIZINE [Concomitant]
     Active Substance: MECLIZINE HYDROCHLORIDE
  20. ACIDOPHILUS [Concomitant]
     Active Substance: LACTOBACILLUS ACIDOPHILUS
  21. CALCIUM [Concomitant]
     Active Substance: CALCIUM
  22. GLUCOSAMINE [Concomitant]
     Active Substance: GLUCOSAMINE
  23. BENADRYL [Concomitant]
     Active Substance: DIPHENHYDRAMINE HYDROCHLORIDE
  24. TYLENOL [Concomitant]
     Active Substance: ACETAMINOPHEN
  25. DIPHENHYDRAMINE [Concomitant]
     Active Substance: DIPHENHYDRAMINE
  26. ACETAMINOPHEN [Concomitant]
     Active Substance: ACETAMINOPHEN
  27. AMLODIPINE [Concomitant]
     Active Substance: AMLODIPINE BESYLATE
  28. DIVALPROEX SODIUM [Concomitant]
     Active Substance: DIVALPROEX SODIUM
  29. GABAPENTIN [Concomitant]
     Active Substance: GABAPENTIN
  30. LISINOPRIL [Concomitant]
     Active Substance: LISINOPRIL
  31. HYDROXYZINE HYDROCHLORIDE [Concomitant]
     Active Substance: HYDROXYZINE HYDROCHLORIDE
  32. SOLIFENACIN [SOLIFENACIN SUCCINATE] [Concomitant]

REACTIONS (7)
  - Neutrophil count decreased [Not Recovered/Not Resolved]
  - Hypertensive crisis [Not Recovered/Not Resolved]
  - Infection [Not Recovered/Not Resolved]
  - Decreased immune responsiveness [Recovered/Resolved]
  - Influenza like illness [Not Recovered/Not Resolved]
  - Rash [Not Recovered/Not Resolved]
  - Cellulitis [Recovered/Resolved]

NARRATIVE: CASE EVENT DATE: 20240101
